FAERS Safety Report 10516414 (Version 4)
Quarter: 2015Q2

REPORT INFORMATION
  Report Type: Spontaneous
  Country: US (occurrence: US)
  Receive Date: 20141014
  Receipt Date: 20150420
  Transmission Date: 20150821
  Serious: Yes (Other)
  Sender: FDA-Public Use
  Company Number: US-BAYER-2014-150779

PATIENT
  Age: 20 Year
  Sex: Female
  Weight: 57 kg

DRUGS (5)
  1. TRAMADOL [Concomitant]
     Active Substance: TRAMADOL
     Indication: HEADACHE
     Dosage: 50 MG, UNK
     Dates: start: 200508, end: 20121018
  2. NEURONTIN [Concomitant]
     Active Substance: GABAPENTIN
     Indication: HEADACHE
     Dosage: UNK
     Dates: start: 200508
  3. PRENATAL VITAMINS [Concomitant]
     Active Substance: VITAMINS
  4. MIRENA [Suspect]
     Active Substance: LEVONORGESTREL
     Indication: CONTRACEPTION
     Dosage: 20 MCG/24HR, CONT
     Route: 015
     Dates: start: 20111222, end: 20121022
  5. IRON SULFATE [Concomitant]
     Active Substance: FERROUS SULFATE ANHYDROUS
     Dosage: 325 MG, UNK
     Dates: start: 20121018

REACTIONS (12)
  - Anxiety [None]
  - Depressed mood [None]
  - Fear [None]
  - Genital haemorrhage [None]
  - Medical device discomfort [None]
  - Internal injury [None]
  - Uterine perforation [None]
  - Abdominal pain [None]
  - Pelvic pain [None]
  - Emotional distress [None]
  - Injury [None]
  - Depression [None]

NARRATIVE: CASE EVENT DATE: 201310
